FAERS Safety Report 5310979-1 (Version None)
Quarter: 2007Q2

REPORT INFORMATION
  Report Type: 
  Country: None (occurrence: None)
  Receive Date: 20070423
  Receipt Date: 20070418
  Transmission Date: 20071010
  Serious: Yes (Other)
  Sender: FDA-Public Use
  Company Number: 154155ISR

PATIENT
  Age: 45 Year
  Sex: Female

DRUGS (1)
  1. COPAXONE [Suspect]
     Indication: MULTIPLE SCLEROSIS
     Dosage: 20 MG (20 MG, 1 IN 1D);  SUBCUTANEOUS
     Route: 058
     Dates: start: 20070301

REACTIONS (3)
  - CONDITION AGGRAVATED [None]
  - GAIT DISTURBANCE [None]
  - HEMIPARESIS [None]
